FAERS Safety Report 20445844 (Version 4)
Quarter: 2022Q1

REPORT INFORMATION
  Report Type: Spontaneous
  Country: BR (occurrence: BR)
  Receive Date: 20220208
  Receipt Date: 20220321
  Transmission Date: 20220423
  Serious: Yes (Life-Threatening)
  Sender: FDA-Public Use
  Company Number: BR-NOVARTISPH-NVSC2022BR026886

PATIENT
  Sex: Female

DRUGS (1)
  1. GABAPENTIN [Suspect]
     Active Substance: GABAPENTIN
     Indication: Product used for unknown indication
     Dosage: 1 DOSAGE FORM, Q12H
     Route: 065

REACTIONS (11)
  - Feeling abnormal [Unknown]
  - Dark circles under eyes [Unknown]
  - Fear [Unknown]
  - Vision blurred [Unknown]
  - Dizziness [Unknown]
  - Hypoaesthesia [Unknown]
  - Headache [Unknown]
  - Malaise [Unknown]
  - Pain [Unknown]
  - Intentional underdose [Unknown]
  - Inappropriate schedule of product administration [Unknown]
